FAERS Safety Report 19434481 (Version 1)
Quarter: 2021Q2

REPORT INFORMATION
  Report Type: Spontaneous
  Country: US (occurrence: US)
  Receive Date: 20210617
  Receipt Date: 20210617
  Transmission Date: 20210717
  Serious: No
  Sender: FDA-Public Use
  Company Number: US-ROCHE-2634620

PATIENT
  Sex: Female

DRUGS (4)
  1. ACTEMRA [Suspect]
     Active Substance: TOCILIZUMAB
     Dosage: ACTPEN, 162 MG/ 0.9 M
     Route: 058
     Dates: start: 20191001
  2. ACTEMRA [Suspect]
     Active Substance: TOCILIZUMAB
     Indication: RHEUMATOID ARTHRITIS
     Dosage: ACTPEN, 162 MG/ 0.9 M
     Route: 058
     Dates: start: 20181205
  3. ACTEMRA [Suspect]
     Active Substance: TOCILIZUMAB
     Dosage: ACTPEN, 162 MG/ 0.9 M
     Route: 058
     Dates: start: 20190401
  4. ACTEMRA [Suspect]
     Active Substance: TOCILIZUMAB
     Dosage: 162MG/0.9M PFS
     Route: 058
     Dates: start: 20181201

REACTIONS (2)
  - Device defective [Unknown]
  - No adverse event [Unknown]
